FAERS Safety Report 7788969-9 (Version None)
Quarter: 2011Q3

REPORT INFORMATION
  Report Type: 
  Country: None (occurrence: None)
  Receive Date: 20110928
  Receipt Date: 20110915
  Transmission Date: 20111222
  Serious: Yes (Hospitalization, Other)
  Sender: FDA-Public Use
  Company Number: 08-AUR-05153

PATIENT
  Age: 56 Year
  Sex: Male

DRUGS (3)
  1. ASPIRIN [Concomitant]
  2. SIMVASTATIN [Suspect]
     Indication: PRODUCT USED FOR UNKNOWN INDICATION
     Dosage: 20 MG (20 MG,1 IN 1 D),ORAL ; (40 MG,),ORAL
     Route: 048
  3. CLOPIDOGREL [Concomitant]

REACTIONS (7)
  - ERYTHEMA NODOSUM [None]
  - PALLOR [None]
  - MUSCLE HAEMORRHAGE [None]
  - HYPOTHYROIDISM [None]
  - COMPARTMENT SYNDROME [None]
  - MYOSITIS [None]
  - MUSCLE NECROSIS [None]
